FAERS Safety Report 5013658-3 (Version None)
Quarter: 2006Q2

REPORT INFORMATION
  Report Type: 
  Country: None (occurrence: None)
  Receive Date: 20060530
  Receipt Date: 20060524
  Transmission Date: 20061013
  Serious: Yes (Hospitalization)
  Sender: FDA-Public Use
  Company Number: FR-GLAXOSMITHKLINE-B0425245A

PATIENT
  Age: 40 Year
  Sex: Female
  Weight: 75 kg

DRUGS (6)
  1. AUGMENTIN '125' [Suspect]
     Indication: ANTIBIOTIC PROPHYLAXIS
     Dosage: 1G TWICE PER DAY
     Route: 048
     Dates: start: 20060211, end: 20060212
  2. MIFEPRISTONE [Concomitant]
     Dates: start: 20060207
  3. METHERGINE [Concomitant]
     Dates: start: 20060209
  4. ADEPAL [Concomitant]
     Dates: start: 20060209
  5. CYTOTEC [Concomitant]
     Dates: start: 20060209
  6. OFLOCET [Concomitant]
     Dates: start: 20060212

REACTIONS (12)
  - ACUTE GENERALISED EXANTHEMATOUS PUSTULOSIS [None]
  - CHILLS [None]
  - FEELING HOT [None]
  - LEUKOCYTOSIS [None]
  - PAIN [None]
  - PRURITUS [None]
  - PYREXIA [None]
  - RASH ERYTHEMATOUS [None]
  - RASH PAPULAR [None]
  - RASH PUSTULAR [None]
  - TOXIC SKIN ERUPTION [None]
  - TYPE IV HYPERSENSITIVITY REACTION [None]
